FAERS Safety Report 8906433 (Version 1)
Quarter: 2012Q4

REPORT INFORMATION
  Report Type: Spontaneous
  Country: US (occurrence: None)
  Receive Date: 20121112
  Receipt Date: 20121112
  Transmission Date: 20130627
  Serious: Yes (Other)
  Sender: FDA-Public Use
  Company Number: None

PATIENT
  Age: 75 Year
  Sex: Male
  Weight: 72.7 kg

DRUGS (1)
  1. METHYLENE BLUE [Suspect]
     Indication: SEROMA
     Dosage: Once Injection
     Dates: start: 20120326

REACTIONS (2)
  - Lymphorrhoea [None]
  - Injection site necrosis [None]
